FAERS Safety Report 20891395 (Version 1)
Quarter: 2022Q2

REPORT INFORMATION
  Report Type: Spontaneous
  Country: CA (occurrence: None)
  Receive Date: 20220530
  Receipt Date: 20220530
  Transmission Date: 20220721
  Serious: Yes (Other)
  Sender: FDA-Public Use
  Company Number: CA-ROCHE-3100899

PATIENT
  Age: 82 Year
  Sex: Female

DRUGS (2)
  1. PIRFENIDONE [Suspect]
     Active Substance: PIRFENIDONE
     Indication: Product used for unknown indication
     Dosage: DRUG DOSE FIRST ADMINISTERED IS 1.0 DOSAGE FORMS
     Route: 048
  2. PIRFENIDONE [Suspect]
     Active Substance: PIRFENIDONE
     Dosage: DRUG DOSE FIRST ADMINISTERED IS 2.0 DOSAGE FORMS
     Route: 048

REACTIONS (5)
  - Chills [Unknown]
  - Dysentery [Unknown]
  - Nervousness [Unknown]
  - Decreased appetite [Unknown]
  - Malaise [Unknown]
